FAERS Safety Report 10524981 (Version 3)
Quarter: 2015Q1

REPORT INFORMATION
  Report Type: Spontaneous
  Country: US (occurrence: None)
  Receive Date: 20141015
  Receipt Date: 20150121
  Transmission Date: 20150720
  Serious: Yes (Other)
  Sender: FDA-Public Use
  Company Number: 2014-US-013036

PATIENT
  Age: 46 Year
  Sex: Female

DRUGS (8)
  1. ETODOLAC (ETODOLAC) [Concomitant]
     Active Substance: ETODOLAC
  2. PROZAC [Concomitant]
     Active Substance: FLUOXETINE HYDROCHLORIDE
  3. VIIBRYD [Concomitant]
     Active Substance: VILAZODONE HYDROCHLORIDE
  4. XYREM [Suspect]
     Active Substance: SODIUM OXYBATE
     Indication: NARCOLEPSY
     Route: 048
     Dates: start: 201205, end: 2012
  5. PREVACID [Concomitant]
     Active Substance: LANSOPRAZOLE
  6. MELOXICAM (MELOXICAM) [Concomitant]
     Active Substance: MELOXICAM
  7. ADVAIR (FLUTICASONE PROPIONATE , SALMETEROL XINAFOATE) [Concomitant]
  8. LISINOPRIL (LISINOPRIL) [Concomitant]
     Active Substance: LISINOPRIL

REACTIONS (3)
  - Food allergy [None]
  - Migraine [None]
  - Type 2 diabetes mellitus [None]

NARRATIVE: CASE EVENT DATE: 20140908
